FAERS Safety Report 7237414-0 (Version None)
Quarter: 2011Q1

REPORT INFORMATION
  Report Type: 
  Country: None (occurrence: None)
  Receive Date: 20110121
  Receipt Date: 20110112
  Transmission Date: 20110831
  Serious: Yes (Other)
  Sender: FDA-Public Use
  Company Number: BE-NOVOPROD-320056

PATIENT
  Age: 78 Year
  Sex: Female

DRUGS (5)
  1. NOVOMIX 50 PENFILL [Suspect]
     Indication: TYPE 2 DIABETES MELLITUS
     Dosage: UNK
     Route: 058
     Dates: end: 20101201
  2. NOBETEN [Concomitant]
     Dosage: UNK
     Route: 048
  3. FUROSEMIDE [Concomitant]
     Route: 048
  4. CARDIOASPIRINE [Concomitant]
     Dosage: UNK
     Route: 048
  5. GLUCOPHAGE [Concomitant]
     Indication: DIABETES MELLITUS
     Dosage: UNK
     Route: 048

REACTIONS (1)
  - NEURODERMATITIS [None]
